FAERS Safety Report 9307158 (Version 1)
Quarter: 2013Q2

REPORT INFORMATION
  Report Type: Spontaneous
  Country: ES (occurrence: ES)
  Receive Date: 20130524
  Receipt Date: 20130524
  Transmission Date: 20140414
  Serious: Yes (Hospitalization)
  Sender: FDA-Public Use
  Company Number: ES-PFIZER INC-2013157977

PATIENT
  Age: 71 Year
  Sex: Male

DRUGS (8)
  1. SUTENT [Suspect]
     Indication: RENAL CANCER STAGE IV
     Dosage: 50 MG, 1X/DAY
     Route: 048
     Dates: start: 20130328, end: 20130408
  2. AMOXICILINA + CLAVULANICO [Concomitant]
     Dosage: 1000/200 UNITS NOT SPECIFIED
  3. PARACETAMOL [Concomitant]
  4. GLUCOSE [Concomitant]
  5. ENALAPRIL [Concomitant]
     Dosage: 20 UNK, UNK
  6. ENOXAPARINE [Concomitant]
     Dosage: 80 UNK, UNK
  7. COTRIMOXAZOL [Concomitant]
     Dosage: EVERY 48 HOURS
  8. SERUM PHYSIOLOGICAL [Concomitant]

REACTIONS (1)
  - Pancytopenia [Recovering/Resolving]
